FAERS Safety Report 8817484 (Version 1)
Quarter: 2012Q4

REPORT INFORMATION
  Report Type: Report from Study
  Country: NL (occurrence: NL)
  Receive Date: 20121001
  Receipt Date: 20121001
  Transmission Date: 20130627
  Serious: Yes (Other)
  Sender: FDA-Public Use
  Company Number: NL-SANOFI-AVENTIS-2012SA071036

PATIENT

DRUGS (2)
  1. ACETYLSALICYLIC ACID [Suspect]
     Indication: ANTIPLATELET THERAPY
     Route: 065
  2. CLOPIDOGREL BISULFATE [Suspect]
     Indication: ANTIPLATELET THERAPY
     Route: 065

REACTIONS (2)
  - Platelet aggregation increased [Unknown]
  - Thrombosis in device [Unknown]
